FAERS Safety Report 18635787 (Version 1)
Quarter: 2020Q4

REPORT INFORMATION
  Report Type: Spontaneous
  Country: DK (occurrence: DK)
  Receive Date: 20201218
  Receipt Date: 20201218
  Transmission Date: 20210114
  Serious: Yes (Other)
  Sender: FDA-Public Use
  Company Number: DK-REGENERON PHARMACEUTICALS, INC.-2020-95580

PATIENT

DRUGS (2)
  1. EYLEA [Suspect]
     Active Substance: AFLIBERCEPT
     Dosage: RIGHT EYE, LAST INJECTION PRIOR TO EVENT OCCURRENCE
     Route: 031
     Dates: start: 20200803, end: 20200803
  2. EYLEA [Suspect]
     Active Substance: AFLIBERCEPT
     Indication: PRODUCT USED FOR UNKNOWN INDICATION
     Dosage: TOTAL OF 6 DOSES PRIOR TO THE LAST INJECTION
     Route: 031

REACTIONS (3)
  - Endophthalmitis [Recovering/Resolving]
  - Cataract operation [Unknown]
  - Blindness [Unknown]

NARRATIVE: CASE EVENT DATE: 20200814
